FAERS Safety Report 22173696 (Version 10)
Quarter: 2023Q4

REPORT INFORMATION
  Report Type: Report from Study
  Country: US (occurrence: US)
  Receive Date: 20230404
  Receipt Date: 20231017
  Transmission Date: 20240110
  Serious: Yes (Life-Threatening, Hospitalization, Other)
  Sender: FDA-Public Use
  Company Number: US-HORIZON THERAPEUTICS-HZN-2023-000828

PATIENT

DRUGS (8)
  1. KRYSTEXXA [Suspect]
     Active Substance: PEGLOTICASE
     Indication: Product used for unknown indication
     Dosage: 1ST INFUSION
     Route: 042
     Dates: start: 20230130
  2. KRYSTEXXA [Suspect]
     Active Substance: PEGLOTICASE
     Dosage: 2ND INFUSION
     Route: 042
     Dates: start: 20230227
  3. KRYSTEXXA [Suspect]
     Active Substance: PEGLOTICASE
     Dosage: 3RD INFUSION
     Route: 042
     Dates: start: 20230328
  4. KRYSTEXXA [Suspect]
     Active Substance: PEGLOTICASE
     Dosage: LAST (RECENT) INFUSION
     Route: 042
     Dates: start: 20230508
  5. KRYSTEXXA [Suspect]
     Active Substance: PEGLOTICASE
     Dosage: UNK (INFUSION)
     Route: 042
     Dates: start: 20230820
  6. BENADRYL [Suspect]
     Active Substance: DIPHENHYDRAMINE HYDROCHLORIDE
     Indication: Product used for unknown indication
     Dosage: 50MG BENADRYL BEFORE THE INFUSION STARTED
     Route: 065
  7. UNSPECIFIED INGREDIENT [Concomitant]
     Active Substance: UNSPECIFIED INGREDIENT
     Indication: Product used for unknown indication
     Dosage: NURSE GAVE HER STEROID, 50MG BENADRYL AND ONE TYLENOL (PARACETAMOL) BEFORE THE INFUSION STARTED
     Route: 065
  8. TYLENOL [Concomitant]
     Active Substance: ACETAMINOPHEN
     Indication: Product used for unknown indication
     Route: 065

REACTIONS (17)
  - Blood glucose increased [Recovering/Resolving]
  - Somnolence [Unknown]
  - Oropharyngeal pain [Unknown]
  - Snoring [Unknown]
  - Anxiety [Recovering/Resolving]
  - Gout [Recovering/Resolving]
  - Arteriovenous fistula site infection [Recovered/Resolved]
  - Renal pain [Unknown]
  - Nephropathy [Unknown]
  - Condition aggravated [Unknown]
  - Acute myocardial infarction [Unknown]
  - Stent placement [Unknown]
  - Complication associated with device [Not Recovered/Not Resolved]
  - Surgery [Unknown]
  - Blood pressure decreased [Unknown]
  - Inappropriate schedule of product administration [Unknown]
  - Off label use [Unknown]

NARRATIVE: CASE EVENT DATE: 20230101
